FAERS Safety Report 5566959-4 (Version None)
Quarter: 2007Q4

REPORT INFORMATION
  Report Type: 
  Country: None (occurrence: None)
  Receive Date: 20071219
  Receipt Date: 20070702
  Transmission Date: 20080405
  Serious: No
  Sender: FDA-Public Use
  Company Number: US-BRISTOL-MYERS SQUIBB COMPANY-13832357

PATIENT
  Age: 78 Year
  Sex: Male
  Weight: 77 kg

DRUGS (4)
  1. PRAVACHOL TABS RM 10 MG [Suspect]
     Indication: BLOOD CHOLESTEROL INCREASED
  2. ALTACE [Concomitant]
  3. ASPIRIN [Concomitant]
  4. NICOTINIC ACID [Concomitant]

REACTIONS (2)
  - MUSCULAR WEAKNESS [None]
  - MYALGIA [None]
